FAERS Safety Report 13474055 (Version 1)
Quarter: 2017Q2

REPORT INFORMATION
  Report Type: Spontaneous
  Country: US (occurrence: US)
  Receive Date: 20170424
  Receipt Date: 20170424
  Transmission Date: 20170830
  Serious: Yes (Other)
  Sender: FDA-Public Use
  Company Number: US-SA-2017SA048915

PATIENT
  Age: 71 Year
  Sex: Female

DRUGS (2)
  1. LOVENOX [Suspect]
     Active Substance: ENOXAPARIN SODIUM
     Dosage: 1 MG/KG BID DOSE?FIRST DOSE AT 10:47 AND SECOND DOSE AT 22:25
     Route: 065
     Dates: start: 20170315, end: 20170315
  2. LOVENOX [Suspect]
     Active Substance: ENOXAPARIN SODIUM
     Dosage: 1 MG/KG BID DOSE?FIRST DOSE AT 10:47 AND SECOND DOSE AT 22:25
     Route: 065
     Dates: start: 20170315, end: 20170315

REACTIONS (1)
  - Cerebral haemorrhage [Not Recovered/Not Resolved]

NARRATIVE: CASE EVENT DATE: 20170316
